FAERS Safety Report 15819891 (Version 3)
Quarter: 2020Q4

REPORT INFORMATION
  Report Type: Spontaneous
  Country: US (occurrence: US)
  Receive Date: 20190114
  Receipt Date: 20201215
  Transmission Date: 20210113
  Serious: No
  Sender: FDA-Public Use
  Company Number: US-EMD SERONO-7086041

PATIENT
  Age: 49 Year
  Sex: Female

DRUGS (1)
  1. REBIF [Suspect]
     Active Substance: INTERFERON BETA-1A
     Indication: MULTIPLE SCLEROSIS
     Dosage: REBIF PREFILLED SYRINGE.
     Route: 058
     Dates: start: 20070731, end: 20201118

REACTIONS (6)
  - Balance disorder [Unknown]
  - Gait disturbance [Unknown]
  - Treatment noncompliance [Not Recovered/Not Resolved]
  - Muscle spasms [Unknown]
  - Economic problem [Not Recovered/Not Resolved]
  - Nystagmus [Not Recovered/Not Resolved]

NARRATIVE: CASE EVENT DATE: 2011
